FAERS Safety Report 7939929-6 (Version None)
Quarter: 2011Q4

REPORT INFORMATION
  Report Type: 
  Country: None (occurrence: None)
  Receive Date: 20111125
  Receipt Date: 20111122
  Transmission Date: 20120403
  Serious: Yes (Other)
  Sender: FDA-Public Use
  Company Number: JP-PFIZER INC-2011259979

PATIENT
  Age: 35 Year
  Sex: Female

DRUGS (1)
  1. ALPRAZOLAM [Suspect]
     Dosage: 0.4 MG, 3X/DAY

REACTIONS (1)
  - VITREOUS FLOATERS [None]
